FAERS Safety Report 10231293 (Version 1)
Quarter: 2014Q2

REPORT INFORMATION
  Report Type: Spontaneous
  Country: JP (occurrence: JP)
  Receive Date: 20140611
  Receipt Date: 20140611
  Transmission Date: 20141212
  Serious: Yes (Hospitalization)
  Sender: FDA-Public Use
  Company Number: JP-GLAXOSMITHKLINE-B0879308A

PATIENT
  Age: 34 Year
  Sex: Male

DRUGS (2)
  1. LAMICTAL [Suspect]
     Indication: EPILEPSY
     Dosage: 25MG PER DAY
     Route: 048
     Dates: start: 20130304, end: 20130318
  2. ALEVIATIN [Concomitant]
     Indication: EPILEPSY
     Dosage: 150MG TWICE PER DAY
     Route: 048
     Dates: start: 1998

REACTIONS (12)
  - Erythema multiforme [Recovered/Resolved]
  - Drug-induced liver injury [Unknown]
  - Erythema annulare [Unknown]
  - Pyrexia [Unknown]
  - Ocular hyperaemia [Unknown]
  - Rash [Recovered/Resolved]
  - Decreased appetite [Unknown]
  - Hepatic function abnormal [Unknown]
  - Ultrasound liver abnormal [Unknown]
  - Hepatic enzyme increased [Unknown]
  - Decreased appetite [Unknown]
  - Liver disorder [Unknown]
